FAERS Safety Report 8601833-8 (Version None)
Quarter: 2012Q3

REPORT INFORMATION
  Report Type: 
  Country: None (occurrence: None)
  Receive Date: 20120817
  Receipt Date: 20120626
  Transmission Date: 20120928
  Serious: No
  Sender: FDA-Public Use
  Company Number: US-BRISTOL-MYERS SQUIBB COMPANY-16557266

PATIENT
  Age: 63 Year
  Sex: Male

DRUGS (1)
  1. SPRYCEL [Suspect]
     Indication: CHRONIC MYELOID LEUKAEMIA
     Dosage: INTERRUPTED ON 24APR2012 RESTARTED:25APR2012 AT 25 MG 25-JUN-2012:50MG-ONG
     Route: 048
     Dates: start: 20120215

REACTIONS (1)
  - PLEURAL EFFUSION [None]
